FAERS Safety Report 24085630 (Version 2)
Quarter: 2024Q3

REPORT INFORMATION
  Report Type: Report from Study
  Country: US (occurrence: US)
  Receive Date: 20240712
  Receipt Date: 20240712
  Transmission Date: 20241017
  Serious: Yes (Death, Other)
  Sender: IPSEN
  Company Number: US-IPSEN Group, Research and Development-2024-13747

PATIENT
  Age: 72 Year
  Sex: Male
  Weight: 59.8 kg

DRUGS (1)
  1. ONIVYDE [Suspect]
     Active Substance: IRINOTECAN HYDROCHLORIDE
     Indication: Pancreatic carcinoma
     Dosage: 43MG/ 10ML EVERY 14 DAYS
     Route: 042

REACTIONS (1)
  - Pancreatic carcinoma [Fatal]
